FAERS Safety Report 19260420 (Version 1)
Quarter: 2021Q2

REPORT INFORMATION
  Report Type: Spontaneous
  Country: US (occurrence: US)
  Receive Date: 20210514
  Receipt Date: 20210514
  Transmission Date: 20210717
  Serious: No
  Sender: FDA-Public Use
  Company Number: US-KALA PHARAMACEUTICALS-2021KLA00020

PATIENT
  Age: 71 Year
  Sex: Female
  Weight: 66.21 kg

DRUGS (2)
  1. EYSUVIS [Suspect]
     Active Substance: LOTEPREDNOL ETABONATE
     Indication: DRY EYE
     Dosage: 1 DROP, 4X/DAY IN BOTH EYES
     Route: 047
     Dates: start: 20210205, end: 20210208
  2. UNSPECIFIED OTC (OVER THE COUNTER) REWETTING DROPS [Concomitant]
     Route: 047

REACTIONS (5)
  - Abnormal sensation in eye [Not Recovered/Not Resolved]
  - Ocular discomfort [Not Recovered/Not Resolved]
  - Drug ineffective [Recovered/Resolved]
  - Eye irritation [Not Recovered/Not Resolved]
  - Dry eye [Not Recovered/Not Resolved]

NARRATIVE: CASE EVENT DATE: 20210205
